FAERS Safety Report 18602487 (Version 1)
Quarter: 2020Q4

REPORT INFORMATION
  Report Type: Spontaneous
  Country: US (occurrence: US)
  Receive Date: 20201210
  Receipt Date: 20201210
  Transmission Date: 20210114
  Serious: No
  Sender: FDA-Public Use
  Company Number: US-PERRIGO-20US012485

PATIENT
  Age: 62 Year
  Sex: Female
  Weight: 58.05 kg

DRUGS (4)
  1. OTHER THERAPEUTIC PRODUCTS [Concomitant]
     Active Substance: UNSPECIFIED INGREDIENT
     Indication: CHRONIC OBSTRUCTIVE PULMONARY DISEASE
     Dosage: UNK
     Route: 065
  2. ALBUTEROL SULFATE. [Suspect]
     Active Substance: ALBUTEROL SULFATE
     Dosage: UNKNOWN, Q 4 HOURS PRN
     Route: 055
     Dates: start: 202007, end: 202008
  3. ALBUTEROL SULFATE. [Suspect]
     Active Substance: ALBUTEROL SULFATE
     Dosage: 180 MCG, Q 4 HOURS PRN
     Route: 055
     Dates: start: 20200827
  4. ALBUTEROL SULFATE. [Suspect]
     Active Substance: ALBUTEROL SULFATE
     Indication: CHRONIC OBSTRUCTIVE PULMONARY DISEASE
     Dosage: 180 MCG, Q 4 HOURS PRN
     Route: 055
     Dates: start: 202002, end: 202007

REACTIONS (2)
  - Underdose [Recovered/Resolved]
  - Device delivery system issue [Recovered/Resolved]

NARRATIVE: CASE EVENT DATE: 202007
